FAERS Safety Report 10014105 (Version 3)
Quarter: 2014Q2

REPORT INFORMATION
  Report Type: Spontaneous
  Country: US (occurrence: US)
  Receive Date: 20140317
  Receipt Date: 20140407
  Transmission Date: 20141212
  Serious: Yes (Hospitalization, Other)
  Sender: FDA-Public Use
  Company Number: US-BIOGENIDEC-2014BI021881

PATIENT
  Age: 50 Year
  Sex: Female

DRUGS (9)
  1. AVONEX [Suspect]
     Indication: MULTIPLE SCLEROSIS
     Route: 030
     Dates: start: 20080303
  2. AVONEX [Suspect]
     Indication: MULTIPLE SCLEROSIS
     Route: 030
     Dates: start: 2009
  3. CYCLOBENZAPINE [Concomitant]
  4. VALIUM [Concomitant]
  5. DOCUSATE SODIUM [Concomitant]
  6. FESOTERODINE FUMARATE [Concomitant]
  7. IBUPROFEN [Concomitant]
  8. TRAZODONE [Concomitant]
  9. VENLAFAXINE HCL [Concomitant]

REACTIONS (5)
  - Calculus urinary [Recovered/Resolved]
  - Cholelithiasis [Recovered/Resolved]
  - Post procedural haemorrhage [Recovered/Resolved]
  - Tremor [Recovered/Resolved]
  - Fear of injection [Unknown]
